FAERS Safety Report 14168251 (Version 2)
Quarter: 2018Q2

REPORT INFORMATION
  Report Type: Spontaneous
  Country: US (occurrence: US)
  Receive Date: 20171107
  Receipt Date: 20180515
  Transmission Date: 20180711
  Serious: No
  Sender: FDA-Public Use
  Company Number: US-SA-2017SA106595

PATIENT
  Sex: Male

DRUGS (13)
  1. SOLOSTAR [Concomitant]
     Active Substance: DEVICE
     Dates: start: 2017, end: 2017
  2. LANTUS SOLOSTAR [Concomitant]
     Active Substance: INSULIN GLARGINE
     Dosage: DOSE:18 UNIT(S)
     Route: 065
     Dates: start: 20170601
  3. GLIPIZIDE. [Concomitant]
     Active Substance: GLIPIZIDE
  4. TOUJEO [Suspect]
     Active Substance: INSULIN GLARGINE
     Dosage: DOSE:10 UNIT(S)
     Route: 051
     Dates: start: 2017, end: 2017
  5. SOLOSTAR [Concomitant]
     Active Substance: DEVICE
     Dates: start: 2017, end: 2017
  6. BYDUREON [Concomitant]
     Active Substance: EXENATIDE
     Route: 065
  7. TOUJEO [Suspect]
     Active Substance: INSULIN GLARGINE
     Dosage: DOSE:4 UNIT(S)
     Route: 051
     Dates: start: 2017, end: 2017
  8. TOUJEO [Suspect]
     Active Substance: INSULIN GLARGINE
     Dosage: DOSE:10 UNIT(S)
     Route: 051
     Dates: start: 201705
  9. TOUJEO [Suspect]
     Active Substance: INSULIN GLARGINE
     Dosage: DOSE:15 UNIT(S)
     Route: 051
     Dates: start: 2017
  10. SOLOSTAR [Concomitant]
     Active Substance: DEVICE
     Dates: start: 2017, end: 2017
  11. SOLOSTAR [Concomitant]
     Active Substance: DEVICE
     Dates: start: 2017
  12. METFORMIN [Concomitant]
     Active Substance: METFORMIN HYDROCHLORIDE
  13. SOLOSTAR [Concomitant]
     Active Substance: DEVICE

REACTIONS (5)
  - Fatigue [Unknown]
  - Pain in extremity [Unknown]
  - Headache [Unknown]
  - Cardiac disorder [Unknown]
  - Blood glucose increased [Unknown]

NARRATIVE: CASE EVENT DATE: 20170524
